FAERS Safety Report 19743513 (Version 11)
Quarter: 2022Q2

REPORT INFORMATION
  Report Type: Other
  Country: GB (occurrence: GB)
  Receive Date: 20210825
  Receipt Date: 20220621
  Transmission Date: 20220720
  Serious: Yes (Death, Life-Threatening, Hospitalization, Other)
  Sender: FDA-Public Use
  Company Number: None

PATIENT
  Age: 71 Year
  Sex: Female
  Weight: 54 kg

DRUGS (121)
  1. AMLODIPINE [Suspect]
     Active Substance: AMLODIPINE BESYLATE
     Indication: Hypertension
     Dosage: 1 MILLIGRAM, QD, ONCE A DAY
     Route: 065
  2. AMLODIPINE [Suspect]
     Active Substance: AMLODIPINE BESYLATE
     Dosage: 1, QD
     Route: 065
  3. AMLODIPINE [Suspect]
     Active Substance: AMLODIPINE BESYLATE
     Dosage: UNK, 1 PER DAY
     Route: 065
  4. AMLODIPINE [Suspect]
     Active Substance: AMLODIPINE BESYLATE
     Dosage: UNK, 1 PER DAY
     Route: 065
  5. AMLODIPINE [Suspect]
     Active Substance: AMLODIPINE BESYLATE
     Dosage: UNK, QD
     Route: 065
  6. AMLODIPINE [Suspect]
     Active Substance: AMLODIPINE BESYLATE
     Dosage: 1, QD
     Route: 065
  7. AMLODIPINE [Suspect]
     Active Substance: AMLODIPINE BESYLATE
     Dosage: UNK
     Route: 065
  8. AMLODIPINE [Suspect]
     Active Substance: AMLODIPINE BESYLATE
     Dosage: 1, QD
     Route: 065
  9. AMLODIPINE [Suspect]
     Active Substance: AMLODIPINE BESYLATE
     Dosage: 1, QD
     Route: 065
  10. AMLODIPINE [Suspect]
     Active Substance: AMLODIPINE BESYLATE
     Dosage: UNK, 1 PER DAY
     Route: 065
  11. CARBOPLATIN [Suspect]
     Active Substance: CARBOPLATIN
     Indication: Non-small cell lung cancer
     Dosage: 450 MILLIGRAM, PER DAY (STARTED ON 29 JUL 2020)
     Route: 065
  12. CARBOPLATIN [Suspect]
     Active Substance: CARBOPLATIN
     Dosage: 450 MILLIGRAM UNK (ENDOTRACHEOPULMONARY INSTILLATION, POWDER FOR SOLUTION 450 MG, ONCE PER DAY)
     Route: 065
  13. CARBOPLATIN [Suspect]
     Active Substance: CARBOPLATIN
     Dosage: 450 MILLIGRAM, PER DAY (STARTED ON 29 JUL 2020)
     Route: 065
  14. CIPROFLOXACIN [Suspect]
     Active Substance: CIPROFLOXACIN
     Indication: Prophylaxis
     Dosage: 1, BID (STARTED ON 27 AUG 2020)
     Route: 065
  15. CIPROFLOXACIN [Suspect]
     Active Substance: CIPROFLOXACIN
     Dosage: UNK (STARTED ON 27 AUG 2020)
     Route: 065
  16. DEXAMETHASONE [Suspect]
     Active Substance: DEXAMETHASONE
     Indication: Dysphagia
     Dosage: 1 MILLIGRAM, PER DAY (STARTED ON 26 AUG 2020)
     Route: 065
  17. DEXAMETHASONE [Suspect]
     Active Substance: DEXAMETHASONE
     Dosage: UNK, ONCE PER DAY (STARTED ON 26 AUG 2020)
     Route: 065
  18. DEXAMETHASONE [Suspect]
     Active Substance: DEXAMETHASONE
     Dosage: UNK (STARTED ON 26 AUG 2020)
     Route: 065
  19. DEXAMETHASONE [Suspect]
     Active Substance: DEXAMETHASONE
     Dosage: 1, UNK, EVERY 12 HRS
     Route: 065
  20. DEXAMETHASONE [Suspect]
     Active Substance: DEXAMETHASONE
     Dosage: 1,UNK, BID
     Route: 065
  21. DEXAMETHASONE [Suspect]
     Active Substance: DEXAMETHASONE
     Dosage: UNK
     Route: 065
  22. DEXAMETHASONE [Suspect]
     Active Substance: DEXAMETHASONE
     Dosage: 1, UNK, EVERY 12 HRS
     Route: 065
  23. DEXAMETHASONE [Suspect]
     Active Substance: DEXAMETHASONE
     Dosage: 1,UNK, BID
     Route: 065
  24. DEXAMETHASONE [Suspect]
     Active Substance: DEXAMETHASONE
     Dosage: 1, UNK, EVERY 12 HRS
     Route: 065
  25. DEXAMETHASONE [Suspect]
     Active Substance: DEXAMETHASONE
     Dosage: 1,UNK, BID
     Route: 065
  26. ETOPOSIDE [Suspect]
     Active Substance: ETOPOSIDE
     Indication: Non-small cell lung cancer
     Dosage: 148 MILLIGRAM PER DAY (STARTED ON 29-JUL-2020)
     Route: 065
  27. ETOPOSIDE [Suspect]
     Active Substance: ETOPOSIDE
     Dosage: 600 MILLIGRAM PER DAY (STARTED ON 30-JUL-2020)
     Route: 048
  28. ETOPOSIDE [Suspect]
     Active Substance: ETOPOSIDE
     Dosage: 600 MILLIGRAM  (STARTED ON 30-JUL-2020)
     Route: 065
  29. AMOXICILLIN [Suspect]
     Active Substance: AMOXICILLIN
     Indication: Product used for unknown indication
     Dosage: 1 UNK, EVERY 6 HRS (STARTED ON 10 AUG 2020 TO 16 AUG 2020)
     Route: 065
  30. AMOXICILLIN [Suspect]
     Active Substance: AMOXICILLIN
     Dosage: 1 DOSAGE FORM, PER DAY (STARTED FROM 10 AUG 2020 TILL 16 AUG 2020)
     Route: 065
  31. AMOXICILLIN [Suspect]
     Active Substance: AMOXICILLIN
     Dosage: 1 UNK, QID (STARTED ON 10 AUG 2020 TO 16-AUG-2020)
     Route: 065
  32. AMOXICILLIN [Suspect]
     Active Substance: AMOXICILLIN
     Dosage: UNK, 4 TIMES PER DAY
     Route: 065
  33. AMOXICILLIN [Suspect]
     Active Substance: AMOXICILLIN
     Dosage: UNK, (STARTED ON 10 AUG 2020 TO 16-AUG-2020)
     Route: 065
  34. MORPHINE SULFATE [Suspect]
     Active Substance: MORPHINE SULFATE
     Indication: Prophylaxis
     Dosage: UNK, (STARTED ON 27 JUL 2020)
     Route: 065
  35. MORPHINE SULFATE [Suspect]
     Active Substance: MORPHINE SULFATE
     Indication: Pain
     Dosage: UNK (ORAMORPH) PER DAY (STARTED ON 27 JUL 2020)
     Route: 065
  36. MORPHINE SULFATE [Suspect]
     Active Substance: MORPHINE SULFATE
     Dosage: UNK, (STARTED ON 25 AUG 2020)
     Route: 065
  37. MORPHINE SULFATE [Suspect]
     Active Substance: MORPHINE SULFATE
     Dosage: 1, BID (STARTED ON 31 JUL 2020)
     Route: 065
  38. MORPHINE SULFATE [Suspect]
     Active Substance: MORPHINE SULFATE
     Dosage: 1, PER DAY (STARTED ON 31 JUL 2020)
     Route: 065
  39. MORPHINE SULFATE [Suspect]
     Active Substance: MORPHINE SULFATE
     Dosage: 1 MILLIGRAM, QD (STARTED ON 27-JUL-2020)
     Route: 065
  40. MORPHINE SULFATE [Suspect]
     Active Substance: MORPHINE SULFATE
     Dosage: UNK, (STARTED ON 27 JUL 2020)
     Route: 065
  41. MORPHINE SULFATE [Suspect]
     Active Substance: MORPHINE SULFATE
     Dosage: UNK,1, PER DAY (START DATE: 27-JUL-2020)
     Route: 065
  42. ATEZOLIZUMAB [Suspect]
     Active Substance: ATEZOLIZUMAB
     Indication: Non-small cell lung cancer
     Dosage: 1200 MILLIGRAM EVERY 3 WEEKS (STARTED ON 29 JUL 2020)
     Route: 041
  43. ATEZOLIZUMAB [Suspect]
     Active Substance: ATEZOLIZUMAB
     Indication: Transitional cell carcinoma
     Dosage: UNK
     Route: 065
  44. ATEZOLIZUMAB [Suspect]
     Active Substance: ATEZOLIZUMAB
     Indication: Small cell lung cancer
     Dosage: 1200 MILLIGRAM (19 AUG 2020)
     Route: 042
  45. ATEZOLIZUMAB [Suspect]
     Active Substance: ATEZOLIZUMAB
     Dosage: UNK
     Route: 065
  46. ATEZOLIZUMAB [Suspect]
     Active Substance: ATEZOLIZUMAB
     Dosage: UNK
     Route: 065
  47. CLOPIDOGREL [Suspect]
     Active Substance: CLOPIDOGREL BISULFATE
     Indication: Hypertension
     Dosage: 1 , ONCE A DAY
     Route: 065
  48. CLOPIDOGREL [Suspect]
     Active Substance: CLOPIDOGREL BISULFATE
     Dosage: UNK, ONCE PER DAY
     Route: 065
  49. CLOPIDOGREL [Suspect]
     Active Substance: CLOPIDOGREL BISULFATE
     Dosage: UNK, 1 PER DAY
     Route: 065
  50. CLOPIDOGREL [Suspect]
     Active Substance: CLOPIDOGREL BISULFATE
     Dosage: UNK, 1 PER DAY
     Route: 065
  51. CLOPIDOGREL [Suspect]
     Active Substance: CLOPIDOGREL BISULFATE
     Dosage: UNK, 1 PER DAY
     Route: 065
  52. CLOPIDOGREL [Suspect]
     Active Substance: CLOPIDOGREL BISULFATE
     Dosage: UNK, CLOPIDOGREL BISULFATE
     Route: 065
  53. CYCLIZINE [Suspect]
     Active Substance: CYCLIZINE
     Indication: Vomiting
     Dosage: 4 (UNIT UNKNOWN) PER DAY
     Route: 065
  54. CYCLIZINE [Suspect]
     Active Substance: CYCLIZINE
     Indication: Neutropenic sepsis
     Dosage: 1, 0.3 DAY (1 IN 0.25 DAY)
     Route: 065
  55. CYCLIZINE [Suspect]
     Active Substance: CYCLIZINE
     Dosage: 1 UNK, EVERY 6 HRS
     Route: 065
  56. CYCLIZINE [Suspect]
     Active Substance: CYCLIZINE
     Dosage: UNK
     Route: 065
  57. CYCLIZINE [Suspect]
     Active Substance: CYCLIZINE
     Dosage: UNK
     Route: 065
  58. CYCLIZINE [Suspect]
     Active Substance: CYCLIZINE
     Dosage: 4 MILLIGRAM, ONCE A DAY
     Route: 065
  59. CYCLIZINE [Suspect]
     Active Substance: CYCLIZINE
     Dosage: UNK, 2 TIMES PER DAY
     Route: 065
  60. CYCLIZINE [Suspect]
     Active Substance: CYCLIZINE
     Dosage: UNK, 1, 1.3 DAY
     Route: 065
  61. CYCLIZINE [Suspect]
     Active Substance: CYCLIZINE
     Dosage: UNK, 1, 1.3 DAY
     Route: 065
  62. CYCLIZINE [Suspect]
     Active Substance: CYCLIZINE
     Dosage: UNK, 1, 1.3 DAY
     Route: 065
  63. BENZYDAMINE HYDROCHLORIDE [Suspect]
     Active Substance: BENZYDAMINE HYDROCHLORIDE
     Indication: Prophylaxis
     Dosage: UNK (STARTED ON 19 AUG 2020)
     Route: 065
  64. FLUCONAZOLE [Suspect]
     Active Substance: FLUCONAZOLE
     Indication: Candida infection
     Dosage: UNK, ONCE A DAY
     Route: 065
  65. FLUCONAZOLE [Suspect]
     Active Substance: FLUCONAZOLE
     Dosage: UNK
     Route: 065
  66. FLUCONAZOLE [Suspect]
     Active Substance: FLUCONAZOLE
     Dosage: UNK,1PER DAY
     Route: 065
  67. FLUCONAZOLE [Suspect]
     Active Substance: FLUCONAZOLE
     Dosage: UNK,1PER DAY
     Route: 065
  68. FLUCONAZOLE [Suspect]
     Active Substance: FLUCONAZOLE
     Dosage: UNK,1PER DAY
     Route: 065
  69. FORMOTEROL [Suspect]
     Active Substance: FORMOTEROL
     Indication: Hypertension
     Dosage: 1 MILLIGRAM, BID (STARTED ON 01 MAR 2020)
     Route: 065
  70. FORMOTEROL [Suspect]
     Active Substance: FORMOTEROL
     Dosage: UNK, (STARTED ON 01 MAR 2020)
     Route: 065
  71. FORMOTEROL [Suspect]
     Active Substance: FORMOTEROL
     Dosage: 0.5 MILLIGRAM, BID (STARTED ON 01 MAR 2020)
     Route: 065
  72. FORMOTEROL [Suspect]
     Active Substance: FORMOTEROL
     Dosage: 2 PER DAY (STARTED ON 01 MAR 2020)
     Route: 065
  73. LACTULOSE [Suspect]
     Active Substance: LACTULOSE
     Indication: Prophylaxis
     Dosage: 1 UNK, BID
     Route: 065
  74. LACTULOSE [Suspect]
     Active Substance: LACTULOSE
     Dosage: UNK
     Route: 065
  75. LACTULOSE [Suspect]
     Active Substance: LACTULOSE
     Dosage: 1 UNK, BID
     Route: 065
  76. LACTULOSE [Suspect]
     Active Substance: LACTULOSE
     Dosage: 1 UNK, EVERY 12 HRS
     Route: 065
  77. LACTULOSE [Suspect]
     Active Substance: LACTULOSE
     Dosage: 1 UNK, QD
     Route: 065
  78. LACTULOSE [Suspect]
     Active Substance: LACTULOSE
     Dosage: 1 UNK, BID
     Route: 065
  79. LACTULOSE [Suspect]
     Active Substance: LACTULOSE
     Dosage: 1 UNK, BID
     Route: 065
  80. LACTULOSE [Suspect]
     Active Substance: LACTULOSE
     Dosage: UNK, 2 TIMES PER DAY
     Route: 065
  81. LACTULOSE [Suspect]
     Active Substance: LACTULOSE
     Dosage: UNK, 2 TIMES PER DAY
     Route: 065
  82. LANSOPRAZOLE [Suspect]
     Active Substance: LANSOPRAZOLE
     Indication: Prophylaxis
     Dosage: 1 MILLIGRAM PER DAY (STARTED ON 01 JAN 2017)
     Route: 065
  83. LANSOPRAZOLE [Suspect]
     Active Substance: LANSOPRAZOLE
     Dosage: UNK ,1,PER DAY (STARTED ON 01 JAN 2017)
     Route: 065
  84. LINEZOLID [Suspect]
     Active Substance: LINEZOLID
     Indication: Neutropenic sepsis
     Dosage: UNK (STARTED ON 30 AUG 2020)
     Route: 065
  85. ALBUTEROL [Suspect]
     Active Substance: ALBUTEROL
     Indication: Prophylaxis
     Dosage: UNK
     Route: 065
  86. ALBUTEROL [Suspect]
     Active Substance: ALBUTEROL
     Dosage: UNK
     Route: 065
  87. ALBUTEROL [Suspect]
     Active Substance: ALBUTEROL
     Dosage: UNK
     Route: 065
  88. ALBUTEROL [Suspect]
     Active Substance: ALBUTEROL
     Dosage: UNK
     Route: 065
  89. ACETAMINOPHEN\CODEINE PHOSPHATE [Suspect]
     Active Substance: ACETAMINOPHEN\CODEINE PHOSPHATE
     Indication: Headache
     Dosage: 1 UNK, BID
     Route: 065
  90. ACETAMINOPHEN\CODEINE PHOSPHATE [Suspect]
     Active Substance: ACETAMINOPHEN\CODEINE PHOSPHATE
     Indication: Pain
     Dosage: UNK, QD
     Route: 065
  91. ACETAMINOPHEN\CODEINE PHOSPHATE [Suspect]
     Active Substance: ACETAMINOPHEN\CODEINE PHOSPHATE
     Dosage: 0.5 MILLIGRAM, QD
     Route: 065
  92. ACETAMINOPHEN\CODEINE PHOSPHATE [Suspect]
     Active Substance: ACETAMINOPHEN\CODEINE PHOSPHATE
     Dosage: 2 UNK, BID
     Route: 065
  93. ACETAMINOPHEN\CODEINE PHOSPHATE [Suspect]
     Active Substance: ACETAMINOPHEN\CODEINE PHOSPHATE
     Dosage: UNK
     Route: 065
  94. ACETAMINOPHEN\CODEINE PHOSPHATE [Suspect]
     Active Substance: ACETAMINOPHEN\CODEINE PHOSPHATE
     Dosage: 1 UNK, BID
     Route: 065
  95. ACETAMINOPHEN\CODEINE PHOSPHATE [Suspect]
     Active Substance: ACETAMINOPHEN\CODEINE PHOSPHATE
     Dosage: 1 UNK, BID
     Route: 065
  96. VENLAFAXINE [Suspect]
     Active Substance: VENLAFAXINE HYDROCHLORIDE
     Indication: Depression
     Dosage: 1 UNK, PER DAY, (STARTED ON 20-AUG-2020)
     Route: 065
  97. VENLAFAXINE [Suspect]
     Active Substance: VENLAFAXINE HYDROCHLORIDE
     Dosage: 1, BID (STARTED ON 20 AUG 2020)
     Route: 065
  98. VENLAFAXINE [Suspect]
     Active Substance: VENLAFAXINE HYDROCHLORIDE
     Dosage: 1,UNK, PER DAY
     Route: 065
  99. VENLAFAXINE [Suspect]
     Active Substance: VENLAFAXINE HYDROCHLORIDE
     Dosage: 1 UNK, PER DAY (STARTED ON 20 AUG 2020)
     Route: 065
  100. VENLAFAXINE [Suspect]
     Active Substance: VENLAFAXINE HYDROCHLORIDE
     Dosage: 1 MILLIGRAM, BID
     Route: 065
  101. VENLAFAXINE [Suspect]
     Active Substance: VENLAFAXINE HYDROCHLORIDE
     Dosage: UNK
     Route: 065
  102. VORICONAZOLE [Suspect]
     Active Substance: VORICONAZOLE
     Indication: Neutropenic sepsis
     Dosage: 1 UNK, PER DAY (STARTED ON 30 AUG 2020)
     Route: 065
  103. VORICONAZOLE [Suspect]
     Active Substance: VORICONAZOLE
     Dosage: UNK,(STARTED ON 30 AUG 2020)
     Route: 065
  104. ZOPICLONE [Suspect]
     Active Substance: ZOPICLONE
     Indication: Prophylaxis
     Dosage: 1 UNK, PER DAY (STARTED ON 31 JUL 2020)
     Route: 065
  105. ZOPICLONE [Suspect]
     Active Substance: ZOPICLONE
     Dosage: UNK, PER DAY
     Route: 065
  106. ZOPICLONE [Suspect]
     Active Substance: ZOPICLONE
     Dosage: UNK, (STARTED ON 31 JUL 2020)
     Route: 065
  107. SPIRIVA [Suspect]
     Active Substance: TIOTROPIUM BROMIDE MONOHYDRATE
     Indication: Chronic obstructive pulmonary disease
     Dosage: 1 UNK, PER DAY
     Route: 065
  108. SPIRIVA [Suspect]
     Active Substance: TIOTROPIUM BROMIDE MONOHYDRATE
     Dosage: UNK, QD
     Route: 065
  109. SPIRIVA [Suspect]
     Active Substance: TIOTROPIUM BROMIDE MONOHYDRATE
     Dosage: UNK, QD
     Route: 065
  110. SPIRIVA [Suspect]
     Active Substance: TIOTROPIUM BROMIDE MONOHYDRATE
     Dosage: UNK
     Route: 065
  111. MAGNESIUM [Concomitant]
     Active Substance: MAGNESIUM
     Indication: Product used for unknown indication
     Dosage: UNK (STARTED ON 19 AUG 2020 TO 19 AUG 2020)
     Route: 065
  112. METOCLOPRAMIDE [Concomitant]
     Active Substance: METOCLOPRAMIDE
     Indication: Vomiting
     Dosage: UNK, PER DAY (QD)
     Route: 065
  113. METOCLOPRAMIDE [Concomitant]
     Active Substance: METOCLOPRAMIDE
     Dosage: UNK, PER DAY
     Route: 065
  114. POTASSIUM BICARBONATE\POTASSIUM CHLORIDE [Concomitant]
     Active Substance: POTASSIUM BICARBONATE\POTASSIUM CHLORIDE
     Indication: Prophylaxis
     Dosage: UNK (STARTED ON 19 AUG 2020)
     Route: 065
  115. POTASSIUM BICARBONATE\POTASSIUM CHLORIDE [Concomitant]
     Active Substance: POTASSIUM BICARBONATE\POTASSIUM CHLORIDE
     Dosage: UNK, PER DAY (STARTED ON 28 AUG 2020 TO 01 SEP 2020)
     Route: 065
  116. POTASSIUM BICARBONATE\POTASSIUM CHLORIDE [Concomitant]
     Active Substance: POTASSIUM BICARBONATE\POTASSIUM CHLORIDE
     Dosage: 2 UNK, BID (STARTED ON 19 AUG 2020)
     Route: 065
  117. POTASSIUM BICARBONATE\POTASSIUM CHLORIDE [Concomitant]
     Active Substance: POTASSIUM BICARBONATE\POTASSIUM CHLORIDE
     Dosage: UNK, (5QD)
     Route: 065
  118. POTASSIUM BICARBONATE\POTASSIUM CHLORIDE [Concomitant]
     Active Substance: POTASSIUM BICARBONATE\POTASSIUM CHLORIDE
     Dosage: 1 UNK, BID (STARTED ON 19 AUG 2020)
     Route: 065
  119. SODIUM PHOSPHATE [Concomitant]
     Active Substance: SODIUM PHOSPHATE
     Indication: Product used for unknown indication
     Dosage: UNK, PER DAY (STARTED ON 25 AUG 2020 TO 25 AUG 2020)
     Route: 065
  120. SODIUM PHOSPHATE [Concomitant]
     Active Substance: SODIUM PHOSPHATE
     Dosage: UNK
     Route: 065
  121. ONDANSETRON [Concomitant]
     Active Substance: ONDANSETRON
     Indication: Product used for unknown indication
     Dosage: 8 MILLIGRAM (STRAT AND STOP DATE: 29/7/2020)
     Route: 065

REACTIONS (30)
  - Death [Fatal]
  - Nervous system disorder [Fatal]
  - Gait disturbance [Fatal]
  - Asthenia [Fatal]
  - Dehydration [Fatal]
  - Mucosal inflammation [Fatal]
  - Productive cough [Fatal]
  - Dysphagia [Fatal]
  - Mouth ulceration [Fatal]
  - Constipation [Fatal]
  - Hypomagnesaemia [Fatal]
  - Hypomagnesaemia [Fatal]
  - Headache [Fatal]
  - Hypokalaemia [Fatal]
  - Anaemia [Fatal]
  - Anaemia [Fatal]
  - Vomiting [Fatal]
  - Diarrhoea [Fatal]
  - Dyspnoea [Fatal]
  - Nausea [Fatal]
  - Depression [Fatal]
  - Skin candida [Fatal]
  - Neutropenic sepsis [Fatal]
  - Candida infection [Fatal]
  - Vomiting [Fatal]
  - Neutrophil count decreased [Fatal]
  - Decreased appetite [Fatal]
  - Balance disorder [Fatal]
  - Drug ineffective [Fatal]
  - Off label use [Unknown]

NARRATIVE: CASE EVENT DATE: 20200730
